FAERS Safety Report 7130379-1 (Version None)
Quarter: 2010Q4

REPORT INFORMATION
  Report Type: 
  Country: None (occurrence: None)
  Receive Date: 20101201
  Receipt Date: 20101118
  Transmission Date: 20110411
  Serious: Yes (Hospitalization)
  Sender: FDA-Public Use
  Company Number: US-ELI_LILLY_AND_COMPANY-US200906003150

PATIENT
  Sex: Male

DRUGS (3)
  1. FORTEO [Suspect]
     Dosage: UNK, UNK
  2. TOPAMAX [Concomitant]
  3. MORPHINE [Concomitant]

REACTIONS (5)
  - ARTERIOSCLEROSIS [None]
  - BALANCE DISORDER [None]
  - CARDIAC DISORDER [None]
  - NEURALGIA [None]
  - SOMNOLENCE [None]
